FAERS Safety Report 7136734-8 (Version None)
Quarter: 2010Q4

REPORT INFORMATION
  Report Type: 
  Country: None (occurrence: None)
  Receive Date: 20101118
  Receipt Date: 20101102
  Transmission Date: 20110411
  Serious: Yes (Life-Threatening, Hospitalization, Other)
  Sender: FDA-Public Use
  Company Number: GER/UKI/10/0016579

PATIENT
  Age: 53 Year
  Sex: Female

DRUGS (8)
  1. LAMOTRIGINE [Suspect]
     Indication: SCHIZOAFFECTIVE DISORDER
     Dosage: 300 MG, 1 D, ORAL
     Route: 048
     Dates: start: 20090101
  2. ABILIFY [Suspect]
     Indication: SCHIZOAFFECTIVE DISORDER
     Dosage: 10 MG, 1 D, ORAL
     Route: 048
     Dates: start: 20090201
  3. CLONAZEPAM [Suspect]
     Indication: SCHIZOAFFECTIVE DISORDER
     Dosage: 1 MG, 1 D, ORAL
     Route: 048
     Dates: start: 20090801
  4. MIRTAZAPINE [Suspect]
     Indication: SCHIZOAFFECTIVE DISORDER
     Dosage: 30 MG, 1 D, ORAL
     Route: 048
     Dates: start: 20100401
  5. METFORMIN HCL [Concomitant]
  6. NOVOLOG [Concomitant]
  7. OXALIPLATIN [Concomitant]
  8. LEVOTHYROXINE SODIUM [Concomitant]

REACTIONS (4)
  - GASTROINTESTINAL CARCINOMA [None]
  - HAEMORRHAGE [None]
  - OEDEMA PERIPHERAL [None]
  - WHITE BLOOD CELL COUNT DECREASED [None]
